FAERS Safety Report 15312986 (Version 7)
Quarter: 2020Q1

REPORT INFORMATION
  Report Type: Spontaneous
  Country: US (occurrence: US)
  Receive Date: 20180823
  Receipt Date: 20200317
  Transmission Date: 20200409
  Serious: Yes (Other)
  Sender: FDA-Public Use
  Company Number: US-009507513-1808USA006940

PATIENT
  Sex: Female
  Weight: 49.89 kg

DRUGS (1)
  1. NEXPLANON [Suspect]
     Active Substance: ETONOGESTREL
     Indication: CONTRACEPTION
     Dosage: 1 IMPLANT EVERY 3 YEARS IN HER LEFT ARM
     Route: 059
     Dates: start: 201704, end: 20181121

REACTIONS (10)
  - Complication of device removal [Recovered/Resolved]
  - Complication associated with device [Recovered/Resolved]
  - Contusion [Unknown]
  - Hypoaesthesia [Unknown]
  - Device dislocation [Recovered/Resolved]
  - Device deployment issue [Recovered/Resolved]
  - Scar [Not Recovered/Not Resolved]
  - Pain in extremity [Unknown]
  - Frustration tolerance decreased [Unknown]
  - Stress [Unknown]

NARRATIVE: CASE EVENT DATE: 2018
